FAERS Safety Report 4414068-X (Version None)
Quarter: 2004Q3

REPORT INFORMATION
  Report Type: 
  Country: None (occurrence: None)
  Receive Date: 20040728
  Receipt Date: 20040713
  Transmission Date: 20050211
  Serious: No
  Sender: FDA-Public Use
  Company Number: 2004IM000741

PATIENT
  Age: 66 Year
  Sex: Female

DRUGS (1)
  1. ADVAFERON (A643_INTEFERON ALFACON-1) [Suspect]
     Indication: HEPATITIS C
     Dosage: 12 MU; QOD; SUBCUTANEOUS
     Route: 058
     Dates: start: 20031110, end: 20040505

REACTIONS (2)
  - INJECTION SITE REACTION [None]
  - SKIN DEGENERATIVE DISORDER [None]
